FAERS Safety Report 4339749-8 (Version None)
Quarter: 2004Q2

REPORT INFORMATION
  Report Type: 
  Country: None (occurrence: None)
  Receive Date: 20040415
  Receipt Date: 20040415
  Transmission Date: 20050107
  Serious: Yes (Other)
  Sender: FDA-Public Use
  Company Number: None

PATIENT
  Sex: Female
  Weight: 20.4119 kg

DRUGS (1)
  1. KWELL [Suspect]
     Indication: LICE INFESTATION
     Dosage: 1 OZ ONE TIME
     Dates: start: 20031009, end: 20031009

REACTIONS (3)
  - BURNING SENSATION [None]
  - HYPOAESTHESIA [None]
  - PRURITUS [None]
